FAERS Safety Report 16066052 (Version 2)
Quarter: 2019Q1

REPORT INFORMATION
  Report Type: Spontaneous
  Country: HU (occurrence: HU)
  Receive Date: 20190313
  Receipt Date: 20190316
  Transmission Date: 20190418
  Serious: Yes (Hospitalization, Other)
  Sender: FDA-Public Use
  Company Number: HU-ACCORD-112805

PATIENT
  Age: 77 Year
  Sex: Female

DRUGS (4)
  1. METHYLPREDNISOLONE. [Suspect]
     Active Substance: METHYLPREDNISOLONE
     Indication: BACK PAIN
     Route: 042
  2. GUAIFENESIN. [Suspect]
     Active Substance: GUAIFENESIN
     Indication: BACK PAIN
     Route: 042
  3. ALLOPURINOL. [Suspect]
     Active Substance: ALLOPURINOL
     Indication: PRODUCT USED FOR UNKNOWN INDICATION
     Route: 048
  4. TRAMADOL. [Suspect]
     Active Substance: TRAMADOL
     Indication: BACK PAIN
     Route: 042

REACTIONS (12)
  - Blood creatinine increased [Recovered/Resolved]
  - Rash generalised [Unknown]
  - Oropharyngeal candidiasis [Recovered/Resolved]
  - Pruritus generalised [Recovered/Resolved]
  - Thrombocytopenia [Recovered/Resolved]
  - Back pain [Unknown]
  - Iridocyclitis [Recovered/Resolved]
  - Dysphagia [Unknown]
  - Eye disorder [Unknown]
  - Blood urea increased [Recovered/Resolved]
  - Conjunctivitis [Recovered/Resolved]
  - Stevens-Johnson syndrome [Recovered/Resolved]
